FAERS Safety Report 12300940 (Version 2)
Quarter: 2016Q2

REPORT INFORMATION
  Report Type: Report from Study
  Country: US (occurrence: US)
  Receive Date: 20160425
  Receipt Date: 20160526
  Transmission Date: 20160815
  Serious: Yes (Hospitalization, Other)
  Sender: FDA-Public Use
  Company Number: US-GILEAD-2016-0208024

PATIENT
  Age: 71 Year
  Sex: Female
  Weight: 77.98 kg

DRUGS (16)
  1. MUPIROCIN. [Concomitant]
     Active Substance: MUPIROCIN
  2. VENTOLIN [Concomitant]
     Active Substance: ALBUTEROL SULFATE
  3. SINGULAIR [Concomitant]
     Active Substance: MONTELUKAST SODIUM
  4. BUSPIRONE [Concomitant]
     Active Substance: BUSPIRONE HYDROCHLORIDE
  5. FLONASE                            /00908302/ [Concomitant]
     Active Substance: MOMETASONE FUROATE
  6. TYLENOL WITH CODEINE [Concomitant]
     Active Substance: ACETAMINOPHEN\CODEINE PHOSPHATE
  7. AMBRISENTAN [Suspect]
     Active Substance: AMBRISENTAN
     Indication: PULMONARY HYPERTENSION
     Dosage: 10 MG, QD
     Route: 065
     Dates: start: 20131210
  8. ASPRIN [Concomitant]
     Active Substance: ASPIRIN
  9. ADVAIR HFA [Concomitant]
     Active Substance: FLUTICASONE PROPIONATE\SALMETEROL XINAFOATE
  10. OXYGEN. [Concomitant]
     Active Substance: OXYGEN
  11. SIMVASTATIN. [Concomitant]
     Active Substance: SIMVASTATIN
  12. BALSALAZIDE DISODIUM. [Concomitant]
     Active Substance: BALSALAZIDE DISODIUM
  13. VITAMIN A + D                      /00343801/ [Concomitant]
  14. FUROSEMIDE. [Concomitant]
     Active Substance: FUROSEMIDE
  15. ALPRAZOLAM. [Concomitant]
     Active Substance: ALPRAZOLAM
  16. DIPHENOXYLATE/ATROPINE [Concomitant]
     Active Substance: ATROPINE\DIPHENOXYLATE

REACTIONS (3)
  - Nasal congestion [Unknown]
  - Pulmonary hypertension [Unknown]
  - Dyspnoea [Unknown]
